FAERS Safety Report 6915704-6 (Version None)
Quarter: 2010Q3

REPORT INFORMATION
  Report Type: 
  Country: None (occurrence: None)
  Receive Date: 20100804
  Receipt Date: 20100720
  Transmission Date: 20110219
  Serious: Yes (Other)
  Sender: FDA-Public Use
  Company Number: 2010AP001497

PATIENT
  Age: 45 Year
  Sex: Female

DRUGS (18)
  1. ZOLPIDEM TARTRATE [Suspect]
     Indication: INSOMNIA
     Dosage: 10 MG;TAB;PO;QD
     Route: 048
     Dates: end: 20100618
  2. VALPROATE SODIUM [Suspect]
     Indication: AFFECTIVE DISORDER
     Dosage: 800 MG;PO
     Route: 048
  3. HALOPERIDOL [Suspect]
     Indication: PSYCHOTIC DISORDER
     Dosage: 10 MG;QD
  4. DIHYDROCOODEINE (DIHYDROCODEINE) [Suspect]
     Indication: PAIN
     Dosage: PO
     Route: 048
     Dates: end: 20100618
  5. DIAZEPAM [Suspect]
     Indication: ANXIETY
     Dosage: 10 MG;PO;QD
     Route: 048
  6. CAFFEINE CITRATE [Suspect]
     Indication: INSOMNIA
  7. AMLODIPINE [Concomitant]
  8. ACETYLSALICYLC ACID (ACETYLSALICYLIC ACID) [Concomitant]
  9. CANDESARTAN CILEXETIL [Concomitant]
  10. LANSOPRAZOLE [Concomitant]
  11. PROCYCLIDINE HYDROCHLORIDE 2MG TAB [Concomitant]
  12. SIMVASTATIN [Concomitant]
  13. INSULIN (INSULIN) [Concomitant]
  14. CITALOPRAM HYDROBROMIDE [Concomitant]
  15. CETIRIZINE HYDROCHLORIDE (CETIRIZINE HYDROCHLORIDE) [Concomitant]
  16. CAFFEINE CITRATE [Concomitant]
  17. DIHYDROCODEINE COMPOUND [Concomitant]
  18. ZOLPIDEM [Concomitant]

REACTIONS (5)
  - CONFUSIONAL STATE [None]
  - DRUG ABUSE [None]
  - DRUG INTERACTION [None]
  - HALLUCINATION [None]
  - SEDATION [None]
